FAERS Safety Report 8876486 (Version 1)
Quarter: 2012Q4

REPORT INFORMATION
  Report Type: 
  Country: DE (occurrence: DE)
  Receive Date: 20121023
  Receipt Date: 20121023
  Transmission Date: 20130627
  Serious: Yes (Life-Threatening, Hospitalization)
  Sender: FDA-Public Use
  Company Number: DE-ABBOTT-12P-062-0998309-00

PATIENT
  Age: 46 Year
  Sex: Female

DRUGS (1)
  1. INFLUENZA VIRUS VACCINE [Suspect]
     Indication: IMMUNISATION
     Dosage: 1 single dose
     Route: 030
     Dates: start: 20120912, end: 20120912

REACTIONS (6)
  - Dyspnoea [Recovered/Resolved]
  - Hypersensitivity [Recovered/Resolved]
  - Rash [Recovered/Resolved]
  - Urticaria [Recovered/Resolved]
  - Blister [Recovered/Resolved]
  - Urticaria [None]
